FAERS Safety Report 4719726-5 (Version None)
Quarter: 2005Q3

REPORT INFORMATION
  Report Type: 
  Country: None (occurrence: None)
  Receive Date: 20050721
  Receipt Date: 20040701
  Transmission Date: 20060218
  Serious: No
  Sender: FDA-Public Use
  Company Number: US-GLAXOSMITHKLINE-A0516762A

PATIENT
  Age: 56 Year
  Sex: Female

DRUGS (7)
  1. AVANDIA [Suspect]
     Dosage: 6MG PER DAY
     Route: 048
  2. GLUCOTROL XL [Concomitant]
  3. GLUCOPHAGE [Concomitant]
  4. PREVACID [Concomitant]
  5. REGLAN [Concomitant]
  6. ZESTRIL [Concomitant]
  7. ATENOLOL [Concomitant]

REACTIONS (2)
  - ABDOMINAL DISTENSION [None]
  - WEIGHT INCREASED [None]
